FAERS Safety Report 15028305 (Version 1)
Quarter: 2018Q2

REPORT INFORMATION
  Report Type: Spontaneous
  Country: US (occurrence: US)
  Receive Date: 20180619
  Receipt Date: 20180619
  Transmission Date: 20180711
  Serious: Yes (Other)
  Sender: FDA-Public Use
  Company Number: US-MICRO LABS LIMITED-ML2018-01175

PATIENT
  Sex: Male

DRUGS (4)
  1. CLARITINE [Concomitant]
     Active Substance: LORATADINE
     Indication: MAST CELL ACTIVATION SYNDROME
  2. CROMOLYN SODIUM ORAL SOLUTION 100 MG/5 ML [Suspect]
     Active Substance: CROMOLYN SODIUM
     Indication: MAST CELL ACTIVATION SYNDROME
     Dosage: 100 MG/5ML, 4 TIMES A DAY (PRESCRIBED DOSE)
     Route: 048
     Dates: start: 20180511, end: 20180511
  3. CROMOLYN SODIUM ORAL SOLUTION 100 MG/5 ML [Suspect]
     Active Substance: CROMOLYN SODIUM
     Dosage: 100 MG/5ML, 4 TIMES A DAY (PRESCRIBED DOSE)
     Route: 048
     Dates: start: 20180607
  4. BENADRYL [Concomitant]
     Active Substance: DIPHENHYDRAMINE HYDROCHLORIDE
     Indication: MAST CELL ACTIVATION SYNDROME

REACTIONS (3)
  - Mast cell activation syndrome [Unknown]
  - Sunburn [Unknown]
  - Paranasal sinus discomfort [Unknown]

NARRATIVE: CASE EVENT DATE: 20180511
